FAERS Safety Report 20012017 (Version 10)
Quarter: 2025Q2

REPORT INFORMATION
  Report Type: Report from Study
  Country: US (occurrence: US)
  Receive Date: 20211029
  Receipt Date: 20250527
  Transmission Date: 20250716
  Serious: Yes (Hospitalization, Other)
  Sender: TAKEDA
  Company Number: US-TAKEDA-US201936954

PATIENT
  Age: 88 Year
  Sex: Male
  Weight: 79 kg

DRUGS (45)
  1. HUMAN IMMUNOGLOBULIN G [Suspect]
     Active Substance: HUMAN IMMUNOGLOBULIN G
     Indication: Hypergammaglobulinaemia
     Dosage: 20 MILLIGRAM, Q2WEEKS
  2. HUMAN IMMUNOGLOBULIN G [Suspect]
     Active Substance: HUMAN IMMUNOGLOBULIN G
     Indication: Immunodeficiency
     Dosage: 20 GRAM, Q2WEEKS
     Dates: start: 20180930
  3. HUMAN IMMUNOGLOBULIN G [Suspect]
     Active Substance: HUMAN IMMUNOGLOBULIN G
     Indication: Immune system disorder
     Dosage: 20 MILLIGRAM, Q2WEEKS
     Dates: start: 20190928
  4. HUMAN IMMUNOGLOBULIN G [Suspect]
     Active Substance: HUMAN IMMUNOGLOBULIN G
     Dosage: 15 GRAM, Q2WEEKS
  5. BENADRYL [Suspect]
     Active Substance: DIPHENHYDRAMINE HYDROCHLORIDE
     Indication: Product used for unknown indication
  6. ACETAMINOPHEN [Concomitant]
     Active Substance: ACETAMINOPHEN
  7. DIPHENHYDRAMINE [Concomitant]
     Active Substance: DIPHENHYDRAMINE
  8. EPINEPHRINE [Concomitant]
     Active Substance: EPINEPHRINE
  9. LIDOCAINE [Concomitant]
     Active Substance: LIDOCAINE
  10. LASIX [Concomitant]
     Active Substance: FUROSEMIDE
  11. FLONASE [Concomitant]
     Active Substance: FLUTICASONE PROPIONATE
  12. BONIVA [Concomitant]
     Active Substance: IBANDRONATE SODIUM
  13. ADVAIR HFA [Concomitant]
     Active Substance: FLUTICASONE PROPIONATE\SALMETEROL XINAFOATE
  14. VALSARTAN [Concomitant]
     Active Substance: VALSARTAN
  15. TEA [Concomitant]
     Active Substance: TEA LEAF
  16. SIMVASTATIN [Concomitant]
     Active Substance: SIMVASTATIN
  17. VITAMIN C [Concomitant]
     Active Substance: ASCORBIC ACID
  18. VITAMIN D3 [Concomitant]
     Active Substance: CHOLECALCIFEROL
  19. XARELTO [Concomitant]
     Active Substance: RIVAROXABAN
  20. BUPROPION HYDROCHLORIDE [Concomitant]
     Active Substance: BUPROPION HYDROCHLORIDE
  21. FLUTICASONE PROPIONATE [Concomitant]
     Active Substance: FLUTICASONE PROPIONATE
  22. ANDROGEL [Concomitant]
     Active Substance: TESTOSTERONE
  23. SODIUM CHLORIDE [Concomitant]
     Active Substance: SODIUM CHLORIDE
  24. Nyquil childrens [Concomitant]
  25. EPIGALLOCATECHIN GALLATE [Concomitant]
     Active Substance: EPIGALLOCATECHIN GALLATE
  26. Echinacea goldenseal [Concomitant]
  27. PREDNISONE [Concomitant]
     Active Substance: PREDNISONE
  28. PHENAZOPYRIDINE HYDROCHLORIDE [Concomitant]
     Active Substance: PHENAZOPYRIDINE HYDROCHLORIDE
  29. HERBALS [Concomitant]
     Active Substance: HERBALS
  30. EUCALYPTOL [Concomitant]
     Active Substance: EUCALYPTOL
  31. TAMSULOSIN HYDROCHLORIDE [Concomitant]
     Active Substance: TAMSULOSIN HYDROCHLORIDE
  32. CODEINE\PROMETHAZINE [Concomitant]
     Active Substance: CODEINE\PROMETHAZINE
  33. IBANDRONATE SODIUM [Concomitant]
     Active Substance: IBANDRONATE SODIUM
  34. LISINOPRIL [Concomitant]
     Active Substance: LISINOPRIL
  35. CARVEDILOL [Concomitant]
     Active Substance: CARVEDILOL
  36. Vick [Concomitant]
  37. ESCITALOPRAM OXALATE [Concomitant]
     Active Substance: ESCITALOPRAM OXALATE
  38. ELIQUIS [Concomitant]
     Active Substance: APIXABAN
  39. METOPROLOL SUCCINATE [Concomitant]
     Active Substance: METOPROLOL SUCCINATE
  40. POTASSIUM CHLORIDE [Concomitant]
     Active Substance: POTASSIUM CHLORIDE
  41. HERBALS\TURMERIC [Concomitant]
     Active Substance: HERBALS\TURMERIC
  42. XYOSTED [Concomitant]
     Active Substance: TESTOSTERONE ENANTHATE
  43. Glucosamin chondroitin [Concomitant]
  44. DIPHENHYDRAMINE HYDROCHLORIDE [Concomitant]
     Active Substance: DIPHENHYDRAMINE HYDROCHLORIDE
  45. CHONDROITIN SULFATE (BOVINE)\GLUCOSAMINE HYDROCHLORIDE [Concomitant]
     Active Substance: CHONDROITIN SULFATE (BOVINE)\GLUCOSAMINE HYDROCHLORIDE

REACTIONS (13)
  - Prostatic disorder [Unknown]
  - Post procedural haemorrhage [Unknown]
  - COVID-19 [Unknown]
  - Nail hypertrophy [Unknown]
  - Application site laceration [Unknown]
  - Product dose omission issue [Unknown]
  - Product prescribing issue [Unknown]
  - Inappropriate schedule of product administration [Unknown]
  - Rash pruritic [Unknown]
  - Infusion site reaction [Unknown]
  - Pruritus [Unknown]
  - Back pain [Unknown]
  - Urticaria [Unknown]

NARRATIVE: CASE EVENT DATE: 20240228
